FAERS Safety Report 7968306-7 (Version None)
Quarter: 2011Q4

REPORT INFORMATION
  Report Type: 
  Country: None (occurrence: None)
  Receive Date: 20111209
  Receipt Date: 20111208
  Transmission Date: 20120403
  Serious: Yes (Death, Other)
  Sender: FDA-Public Use
  Company Number: PHEH2011US010516

PATIENT
  Sex: Male

DRUGS (1)
  1. EXJADE [Suspect]
     Dosage: 1125 MG, QD
     Route: 048

REACTIONS (2)
  - PANCYTOPENIA [None]
  - ACUTE MYELOID LEUKAEMIA [None]
